FAERS Safety Report 4503188-7 (Version None)
Quarter: 2004Q4

REPORT INFORMATION
  Report Type: 
  Country: None (occurrence: None)
  Receive Date: 20041112
  Receipt Date: 20041103
  Transmission Date: 20050328
  Serious: Yes (Other)
  Sender: FDA-Public Use
  Company Number: 2004242963DE

PATIENT
  Sex: Female

DRUGS (1)
  1. DEPO-CLINOVIR (MEDROXYPROGESTERONE ACETATE) SUSPENSION, 150MG/ML [Suspect]
     Dosage: FIRST ADMINISTRATION
     Dates: start: 20010101, end: 20010101

REACTIONS (1)
  - MYOCARDIAL INFARCTION [None]
